FAERS Safety Report 6342984-0 (Version None)
Quarter: 2009Q3

REPORT INFORMATION
  Report Type: 
  Country: None (occurrence: None)
  Receive Date: 20090908
  Receipt Date: 20090807
  Transmission Date: 20100115
  Serious: No
  Sender: FDA-Public Use
  Company Number: US-BAYER-200929432NA

PATIENT
  Age: 19 Year
  Sex: Male

DRUGS (1)
  1. AVELOX [Suspect]
     Indication: PNEUMONIA PRIMARY ATYPICAL
     Dates: start: 20090731, end: 20090803

REACTIONS (1)
  - PARAESTHESIA [None]
